FAERS Safety Report 10595269 (Version 1)
Quarter: 2014Q4

REPORT INFORMATION
  Report Type: Spontaneous
  Country: US (occurrence: None)
  Receive Date: 20141119
  Receipt Date: 20141119
  Transmission Date: 20150529
  Serious: Yes (Other)
  Sender: FDA-Public Use
  Company Number: None

PATIENT

DRUGS (1)
  1. WELLBUTRIN SR [Suspect]
     Active Substance: BUPROPION HYDROCHLORIDE
     Dates: start: 201409, end: 201410

REACTIONS (2)
  - Pain [None]
  - Gastrointestinal disorder [None]

NARRATIVE: CASE EVENT DATE: 201410
